FAERS Safety Report 22805637 (Version 2)
Quarter: 2024Q1

REPORT INFORMATION
  Report Type: Report from Study
  Country: US (occurrence: US)
  Receive Date: 20230809
  Receipt Date: 20240105
  Transmission Date: 20240409
  Serious: Yes (Hospitalization)
  Sender: FDA-Public Use
  Company Number: US-PFIZER INC-PV202300128526

PATIENT
  Age: 3 Year
  Sex: Male

DRUGS (19)
  1. FOSPHENYTOIN SODIUM [Suspect]
     Active Substance: FOSPHENYTOIN SODIUM
     Indication: Seizure
     Dosage: UNK
  2. INVESTIGATIONAL PRODUCT [Suspect]
     Active Substance: INVESTIGATIONAL PRODUCT
     Indication: Epileptic encephalopathy
     Dosage: UNK, 3X/DAY
     Route: 048
     Dates: start: 20221128, end: 20230316
  3. INVESTIGATIONAL PRODUCT [Suspect]
     Active Substance: INVESTIGATIONAL PRODUCT
     Dosage: DL3 DOSE, 3X/DAY
     Route: 048
     Dates: start: 20230317, end: 20230622
  4. DEPAKENE [Suspect]
     Active Substance: VALPROIC ACID
     Indication: Seizure
  5. DIPHENHYDRAMINE [Suspect]
     Active Substance: DIPHENHYDRAMINE
     Indication: Seizure
  6. LAMICTAL [Suspect]
     Active Substance: LAMOTRIGINE
     Indication: Seizure
  7. TEGRETOL [Suspect]
     Active Substance: CARBAMAZEPINE
     Indication: Seizure
  8. ONFI [Suspect]
     Active Substance: CLOBAZAM
  9. MELATONIN [Concomitant]
     Active Substance: MELATONIN
     Indication: Insomnia
  10. FERROUS SULFATE [Concomitant]
     Active Substance: FERROUS SULFATE
  11. ENFAMIL D VI SOL [Concomitant]
  12. GLYCOLAX [Concomitant]
     Active Substance: POLYETHYLENE GLYCOL 3350
     Indication: Constipation
  13. PYRIDOXINE [Concomitant]
     Active Substance: PYRIDOXINE
  14. ZOFRAN [Concomitant]
     Active Substance: ONDANSETRON HYDROCHLORIDE
  15. LANSOPRAZOLE [Concomitant]
     Active Substance: LANSOPRAZOLE
     Indication: Gastrooesophageal reflux disease
  16. BIFIDOBACTERIUM SPP.\LACTOBACILLUS ACIDOPHILUS [Concomitant]
     Active Substance: BIFIDOBACTERIUM SPP.\LACTOBACILLUS ACIDOPHILUS
  17. DESITIN [COD-LIVER OIL;ZINC OXIDE] [Concomitant]
  18. CALMOSEPTINE [MENTHOL;ZINC OXIDE] [Concomitant]
     Indication: Dermatitis diaper
  19. CARNITOR [Concomitant]
     Active Substance: LEVOCARNITINE

REACTIONS (2)
  - Seizure [Recovered/Resolved]
  - Seizure [Recovered/Resolved]

NARRATIVE: CASE EVENT DATE: 20230713
